FAERS Safety Report 8532432-4 (Version None)
Quarter: 2012Q3

REPORT INFORMATION
  Report Type: 
  Country: None (occurrence: None)
  Receive Date: 20120724
  Receipt Date: 20120716
  Transmission Date: 20120928
  Serious: No
  Sender: FDA-Public Use
  Company Number: US-BIOGENIDEC-2012BI025711

PATIENT
  Age: 60 Year
  Sex: Female

DRUGS (4)
  1. AVONEX [Suspect]
     Indication: MULTIPLE SCLEROSIS
     Route: 030
  2. AVONEX [Suspect]
     Route: 030
     Dates: start: 19981101
  3. AVONEX [Suspect]
     Route: 030
     Dates: start: 20021029
  4. AVONEX [Suspect]
     Route: 030
     Dates: start: 20120712

REACTIONS (2)
  - CONTUSION [None]
  - INJECTION SITE HAEMORRHAGE [None]
